FAERS Safety Report 20212097 (Version 1)
Quarter: 2021Q4

REPORT INFORMATION
  Report Type: Other
  Country: US (occurrence: US)
  Receive Date: 20211221
  Receipt Date: 20211221
  Transmission Date: 20220303
  Serious: Yes (Hospitalization)
  Sender: FDA-Public Use
  Company Number: US-ACORDA-ACO_171056_2021

PATIENT
  Sex: Male

DRUGS (1)
  1. INBRIJA [Suspect]
     Active Substance: LEVODOPA
     Indication: Parkinson^s disease
     Dosage: INHALE CONTENTS OF 2 CAPSULES AS NEEDED; UPTO MAXIMUM OF 6 CAPSULES A DAY
     Dates: start: 20201113

REACTIONS (3)
  - Tendon rupture [Not Recovered/Not Resolved]
  - Pneumonia [Not Recovered/Not Resolved]
  - Hallucination [Not Recovered/Not Resolved]
